FAERS Safety Report 9995215 (Version 1)
Quarter: 2014Q1

REPORT INFORMATION
  Report Type: Spontaneous
  Country: US (occurrence: None)
  Receive Date: 20140225
  Receipt Date: 20140225
  Transmission Date: 20141002
  Serious: Yes (Hospitalization)
  Sender: FDA-Public Use
  Company Number: 2013-237

PATIENT
  Age: 38 Year
  Sex: Female
  Weight: 98 kg

DRUGS (13)
  1. PRIALT [Suspect]
     Indication: COMPLEX REGIONAL PAIN SYNDROME
     Dosage: 2.5 UG, SINGLE INTRATHECAL
     Route: 037
     Dates: start: 20130516, end: 20130516
  2. KETANE (KETOTIFEN FUMARATE) [Concomitant]
  3. SOLU-CORTEF(HYDROCORTISONE SODIUM SUCCINATE) [Concomitant]
  4. VALIUM (DIAZEPAM) [Concomitant]
  5. PHENERGAN(PROMETHAZINE HYDROCHLORIDE) [Concomitant]
  6. FENTANYL(FENTANYL CITRATE) [Concomitant]
  7. MS CONTIN(MORPHINE SULFATE) [Concomitant]
  8. CYMBALTA [Concomitant]
  9. LYRICA(PREGABALIN) [Concomitant]
  10. METHADONE HCL(METHADONE HYDROCHLORIDE) [Concomitant]
  11. NEURONTIN(GABAPENTIN) [Concomitant]
  12. VITAMIN D(COLECALCIFEROL) [Concomitant]
  13. PERCOCET(OXYCODONE HYDROCHLORIDE, PARACETAMOL) [Concomitant]

REACTIONS (2)
  - Complex regional pain syndrome [None]
  - Condition aggravated [None]
